FAERS Safety Report 6288260-6 (Version None)
Quarter: 2009Q3

REPORT INFORMATION
  Report Type: 
  Country: None (occurrence: None)
  Receive Date: 20090729
  Receipt Date: 20090717
  Transmission Date: 20100115
  Serious: Yes (Other)
  Sender: FDA-Public Use
  Company Number: SG-PFIZER INC-2009243378

PATIENT
  Age: 59 Year

DRUGS (1)
  1. GLIPIZIDE [Suspect]

REACTIONS (2)
  - EPIGASTRIC DISCOMFORT [None]
  - VOMITING [None]
